FAERS Safety Report 5360041-7 (Version None)
Quarter: 2007Q2

REPORT INFORMATION
  Report Type: 
  Country: None (occurrence: None)
  Receive Date: 20070614
  Receipt Date: 20070604
  Transmission Date: 20071010
  Serious: Yes (Hospitalization, Other)
  Sender: FDA-Public Use
  Company Number: GXKR2007US04840

PATIENT
  Age: 70 Year
  Sex: Male

DRUGS (6)
  1. CEFTRIAXONE [Suspect]
     Indication: SERRATIA INFECTION
     Dosage: UNK, UNK, INTRAVENOUS
     Route: 042
  2. CEFAZOLIN [Suspect]
  3. PIPERACILLIN W/TAZOBACTAM(PIPERACILLIN, TAZOBACTAM) [Suspect]
     Indication: SERRATIA INFECTION
  4. IMIPENEM (IMIPENEM) [Concomitant]
  5. DILTIAZEM [Concomitant]
  6. COUMADIN [Concomitant]

REACTIONS (14)
  - ANTIBODY TEST POSITIVE [None]
  - ATRIAL FIBRILLATION [None]
  - BLOOD DISORDER [None]
  - BLOOD LACTATE DEHYDROGENASE INCREASED [None]
  - COAGULOPATHY [None]
  - HAEMOGLOBIN DECREASED [None]
  - HAEMOLYSIS [None]
  - HAEMOLYTIC ANAEMIA [None]
  - HAEMORRHAGE [None]
  - MITRAL VALVE REPAIR [None]
  - PERICARDIAL EFFUSION [None]
  - POSTOPERATIVE WOUND INFECTION [None]
  - SERRATIA INFECTION [None]
  - TRICUSPID VALVE REPAIR [None]
